FAERS Safety Report 8825424 (Version 7)
Quarter: 2013Q2

REPORT INFORMATION
  Report Type: Spontaneous
  Country: US (occurrence: US)
  Receive Date: 20121004
  Receipt Date: 20130418
  Transmission Date: 20140414
  Serious: Yes (Hospitalization, Other)
  Sender: FDA-Public Use
  Company Number: US-009507513-1201USA00240

PATIENT
  Sex: Female
  Weight: 66.21 kg

DRUGS (3)
  1. FOSAMAX [Suspect]
     Indication: OSTEOPENIA
     Dosage: 10 MG, QD
     Route: 048
     Dates: start: 1995, end: 200308
  2. FOSAMAX [Suspect]
     Indication: OSTEOPOROSIS
     Dosage: 70 MG, QW
     Route: 048
     Dates: start: 200308, end: 200912
  3. FOSAMAX PLUS D [Suspect]
     Indication: OSTEOPOROSIS
     Dosage: 70 MG, QW
     Route: 048
     Dates: start: 200508, end: 200709

REACTIONS (27)
  - Femur fracture [Unknown]
  - Humerus fracture [Unknown]
  - Intramedullary rod insertion [Unknown]
  - Bone debridement [Unknown]
  - Fracture reduction [Unknown]
  - Skin cancer [Unknown]
  - Fall [Unknown]
  - External fixation of fracture [Unknown]
  - Skin neoplasm excision [Unknown]
  - Endodontic procedure [Unknown]
  - Hypertension [Unknown]
  - Extraskeletal ossification [Unknown]
  - Anaemia [Unknown]
  - Gait disturbance [Recovered/Resolved]
  - Accident [Unknown]
  - Joint injury [Unknown]
  - Glaucoma [Unknown]
  - Cataract operation [Unknown]
  - Eye laser surgery [Unknown]
  - Retinal operation [Unknown]
  - Wrist fracture [Unknown]
  - Foot fracture [Unknown]
  - Tendon rupture [Unknown]
  - Gastrooesophageal reflux disease [Unknown]
  - Pain in extremity [Unknown]
  - Musculoskeletal pain [Unknown]
  - Rash [Unknown]
